FAERS Safety Report 17333996 (Version 1)
Quarter: 2020Q1

REPORT INFORMATION
  Report Type: Spontaneous
  Country: US (occurrence: US)
  Receive Date: 20200128
  Receipt Date: 20200128
  Transmission Date: 20200409
  Serious: No
  Sender: FDA-Public Use
  Company Number: US-GALDERMA-US19049600

PATIENT
  Age: 26 Year
  Sex: Female

DRUGS (24)
  1. PROACTIV MD ADAPALENE ACNE TREATMENT [Suspect]
     Active Substance: ADAPALENE
     Indication: SEBORRHOEA
  2. PROACTIV MD DEEP CLEANSING FACE WASH [Concomitant]
     Active Substance: COSMETICS
     Indication: ERYTHEMA
  3. PROACTIV EMERGENCY BLEMISH RELIEF [Concomitant]
     Active Substance: BENZOYL PEROXIDE
     Indication: SEBORRHOEA
  4. PROACTIV MD DEEP CLEANSING FACE WASH [Concomitant]
     Active Substance: COSMETICS
     Indication: SEBORRHOEA
  5. PROACTIV DETOX HYDROGEL FACE MASK [Concomitant]
     Indication: ACNE
     Route: 061
     Dates: start: 20190112, end: 20190716
  6. PROACTIV EMERGENCY BLEMISH RELIEF [Concomitant]
     Active Substance: BENZOYL PEROXIDE
     Indication: ERYTHEMA
  7. PROACTIV EYE BRIGHTENING SERUM [Concomitant]
     Active Substance: COSMETICS
     Indication: ACNE
     Route: 061
     Dates: start: 20190112, end: 20190716
  8. PROACTIV EYE BRIGHTENING SERUM [Concomitant]
     Active Substance: COSMETICS
     Indication: SEBORRHOEA
  9. PROACTIV MD DEEP CLEANSING FACE WASH [Concomitant]
     Active Substance: COSMETICS
     Indication: ACNE
     Route: 061
     Dates: start: 20190112, end: 20190716
  10. PROACTIV MAKEUP CLEANSING WIPES [Concomitant]
     Indication: SEBORRHOEA
  11. PROACTIV MD DAILY OIL CONTROL SPF 30 [Suspect]
     Active Substance: AVOBENZONE\OCTISALATE\OCTOCRYLENE
     Indication: ACNE
     Route: 061
     Dates: start: 20190112, end: 20190716
  12. PROACTIV MD BALANCING TONER [Concomitant]
     Active Substance: COSMETICS
     Indication: ACNE
     Route: 061
     Dates: start: 20190112, end: 20190716
  13. PROACTIV MD BALANCING TONER [Concomitant]
     Active Substance: COSMETICS
     Indication: ERYTHEMA
  14. PROACTIV DETOX HYDROGEL FACE MASK [Concomitant]
     Indication: SEBORRHOEA
  15. PROACTIV MD ADAPALENE ACNE TREATMENT [Suspect]
     Active Substance: ADAPALENE
     Indication: ERYTHEMA
  16. PROACTIV MD BALANCING TONER [Concomitant]
     Active Substance: COSMETICS
     Indication: SEBORRHOEA
  17. PROACTIV MAKEUP CLEANSING WIPES [Concomitant]
     Indication: ACNE
     Route: 061
     Dates: start: 20190112, end: 20190716
  18. PROACTIV EYE BRIGHTENING SERUM [Concomitant]
     Active Substance: COSMETICS
     Indication: ERYTHEMA
  19. PROACTIV MD ADAPALENE ACNE TREATMENT [Suspect]
     Active Substance: ADAPALENE
     Indication: ACNE
     Dosage: 0.1%
     Route: 061
     Dates: start: 20190112, end: 20190716
  20. PROACTIV MD DAILY OIL CONTROL SPF 30 [Suspect]
     Active Substance: AVOBENZONE\OCTISALATE\OCTOCRYLENE
     Indication: SEBORRHOEA
  21. PROACTIV MD DAILY OIL CONTROL SPF 30 [Suspect]
     Active Substance: AVOBENZONE\OCTISALATE\OCTOCRYLENE
     Indication: ERYTHEMA
  22. PROACTIV DETOX HYDROGEL FACE MASK [Concomitant]
     Indication: ERYTHEMA
  23. PROACTIV EMERGENCY BLEMISH RELIEF [Concomitant]
     Active Substance: BENZOYL PEROXIDE
     Indication: ACNE
     Route: 061
     Dates: start: 20190112, end: 20190716
  24. PROACTIV MAKEUP CLEANSING WIPES [Concomitant]
     Indication: ERYTHEMA

REACTIONS (3)
  - Erythema [Recovering/Resolving]
  - Rash macular [Recovering/Resolving]
  - Dry skin [Recovering/Resolving]

NARRATIVE: CASE EVENT DATE: 20190126
